FAERS Safety Report 5976373-5 (Version None)
Quarter: 2008Q4

REPORT INFORMATION
  Report Type: 
  Country: None (occurrence: None)
  Receive Date: 20081202
  Receipt Date: 20081111
  Transmission Date: 20090506
  Serious: No
  Sender: FDA-Public Use
  Company Number: US-B.I. PHARMACEUTICALS,INC./RIDGEFIELD-2008-BP-14619BP

PATIENT
  Sex: Male

DRUGS (6)
  1. FLOMAX [Suspect]
     Indication: BENIGN PROSTATIC HYPERPLASIA
     Dosage: .4MG
     Route: 048
     Dates: start: 20060101
  2. FLOMAX [Suspect]
     Indication: POLLAKIURIA
  3. MULTIVITAMIN [Concomitant]
  4. CENTRUM [Concomitant]
  5. VIAGRA [Concomitant]
     Indication: PEYRONIE'S DISEASE
  6. VIAGRA [Concomitant]
     Indication: ERECTILE DYSFUNCTION

REACTIONS (2)
  - DRUG INEFFECTIVE [None]
  - NOCTURIA [None]
